FAERS Safety Report 4401067-7 (Version None)
Quarter: 2004Q3

REPORT INFORMATION
  Report Type: 
  Country: None (occurrence: None)
  Receive Date: 20040907
  Receipt Date: 20031014
  Transmission Date: 20050211
  Serious: No
  Sender: FDA-Public Use
  Company Number: US-BRISTOL-MYERS SQUIBB COMPANY-12410874

PATIENT
  Sex: Female

DRUGS (2)
  1. SINEMET [Suspect]
     Indication: TREMOR
     Route: 048
  2. COUMADIN [Suspect]
     Indication: HEART VALVE REPLACEMENT

REACTIONS (2)
  - CHEST PAIN [None]
  - VOMITING [None]
